FAERS Safety Report 9967215 (Version 2)
Quarter: 2014Q1

REPORT INFORMATION
  Report Type: Report from Study
  Country: US (occurrence: US)
  Receive Date: 20140305
  Receipt Date: 20140305
  Transmission Date: 20141002
  Serious: Yes (Other)
  Sender: FDA-Public Use
  Company Number: US-ABBVIE-13P-163-1059646-00

PATIENT
  Sex: Female
  Weight: 98.97 kg

DRUGS (4)
  1. HUMIRA [Suspect]
     Indication: EXTRAOCULAR MUSCLE DISORDER
     Dates: start: 2009, end: 20120926
  2. HUMIRA [Suspect]
     Indication: FIBROMYALGIA
  3. HUMIRA [Suspect]
     Indication: MASS
  4. PREDNISONE [Concomitant]
     Indication: PRODUCT USED FOR UNKNOWN INDICATION

REACTIONS (3)
  - Thyroid cancer [Recovered/Resolved]
  - Hypertension [Unknown]
  - Type 2 diabetes mellitus [Unknown]
